FAERS Safety Report 5722777-5 (Version None)
Quarter: 2008Q2

REPORT INFORMATION
  Report Type: 
  Country: None (occurrence: None)
  Receive Date: 20080429
  Receipt Date: 20080114
  Transmission Date: 20081010
  Serious: No
  Sender: FDA-Public Use
  Company Number: US-ASTRAZENECA-2008UW01058

PATIENT
  Sex: Female

DRUGS (2)
  1. NEXIUM [Suspect]
     Route: 048
     Dates: end: 20070801
  2. NEXIUM [Suspect]
     Route: 048
     Dates: start: 20080101

REACTIONS (2)
  - CONSTIPATION [None]
  - HAEMATOCHEZIA [None]
